FAERS Safety Report 23997160 (Version 1)
Quarter: 2024Q2

REPORT INFORMATION
  Report Type: Spontaneous
  Country: US (occurrence: US)
  Receive Date: 20240621
  Receipt Date: 20240621
  Transmission Date: 20240716
  Serious: Yes (Other)
  Sender: FDA-Public Use
  Company Number: US-ALXN-202406USA000902US

PATIENT
  Age: 25 Year
  Sex: Female

DRUGS (1)
  1. SOLIRIS [Suspect]
     Active Substance: ECULIZUMAB
     Indication: Myasthenia gravis
     Dosage: UNK
     Route: 065

REACTIONS (6)
  - Disseminated gonococcal infection [Unknown]
  - Exposure during pregnancy [Unknown]
  - Vulvovaginal candidiasis [Unknown]
  - Fatigue [Unknown]
  - Diplopia [Unknown]
  - Eyelid ptosis [Unknown]
